FAERS Safety Report 6253935-1 (Version None)
Quarter: 2009Q3

REPORT INFORMATION
  Report Type: 
  Country: None (occurrence: None)
  Receive Date: 20090702
  Receipt Date: 20090623
  Transmission Date: 20100115
  Serious: Yes (Other)
  Sender: FDA-Public Use
  Company Number: US-KINGPHARMUSA00001-K200900753

PATIENT
  Age: 72 Year
  Sex: Female
  Weight: 56.689 kg

DRUGS (4)
  1. LEVOXYL [Suspect]
     Indication: THYROID DISORDER
     Dosage: 25 MCG, QD
     Route: 048
     Dates: start: 20081201
  2. PROCARDIA [Concomitant]
     Indication: RAYNAUD'S PHENOMENON
     Dosage: 30 MG, QD
     Route: 048
  3. OMEPRAZOLE [Concomitant]
     Indication: DYSPEPSIA
     Dosage: 20 MG, QD
     Route: 048
  4. ESTEROL [Concomitant]
     Indication: MENOPAUSE
     Dosage: 1 MG, QD
     Route: 048
     Dates: start: 19850101

REACTIONS (4)
  - AGEUSIA [None]
  - DECREASED APPETITE [None]
  - GLOSSODYNIA [None]
  - VARICOSE VEIN [None]
